FAERS Safety Report 16076040 (Version 1)
Quarter: 2019Q1

REPORT INFORMATION
  Report Type: Spontaneous
  Country: IT (occurrence: IT)
  Receive Date: 20190315
  Receipt Date: 20190315
  Transmission Date: 20190418
  Serious: Yes (Hospitalization)
  Sender: FDA-Public Use
  Company Number: IT-DENTSPLY-2019SCDP000133

PATIENT
  Age: 49 Year
  Sex: Female

DRUGS (4)
  1. ECHINACEA                          /01323501/ [Concomitant]
     Active Substance: ECHINACEA PURPUREA
     Indication: IMMUNODEFICIENCY
     Dosage: 30 DRP, QD HERBAL PRODUCT
  2. CARDIAZOL-PARACODINA [Concomitant]
     Indication: COUGH
     Dosage: 10 DRP, QD
  3. MEPIVACAINE HCL AND EPINEPHRINE [Suspect]
     Active Substance: EPINEPHRINE\MEPIVACAINE HYDROCHLORIDE
     Indication: DENTAL LOCAL ANAESTHESIA
     Dosage: 1 DF, SOLUTION FOR INJECTION
     Dates: start: 20180118
  4. BLOPRESS [Concomitant]
     Active Substance: CANDESARTAN CILEXETIL
     Indication: HYPERTENSION
     Dosage: 8 MG, SUSPENTION FROM 3 DAYS BEFORE TREATMENT

REACTIONS (6)
  - Cold sweat [Recovered/Resolved]
  - Dizziness [Recovered/Resolved]
  - Pallor [Recovered/Resolved]
  - Paraesthesia [Recovered/Resolved]
  - Tremor [Recovered/Resolved]
  - Hypoaesthesia [Recovered/Resolved]

NARRATIVE: CASE EVENT DATE: 20180118
